FAERS Safety Report 6015862-4 (Version None)
Quarter: 2008Q4

REPORT INFORMATION
  Report Type: 
  Country: None (occurrence: None)
  Receive Date: 20081222
  Receipt Date: 20081219
  Transmission Date: 20090506
  Serious: Yes (Death)
  Sender: FDA-Public Use
  Company Number: A0761176A

PATIENT
  Age: 75 Year
  Sex: Female
  Weight: 88.6 kg

DRUGS (4)
  1. AVANDIA [Suspect]
     Indication: TYPE 2 DIABETES MELLITUS
     Dosage: 4MG PER DAY
     Route: 048
     Dates: start: 20030101, end: 20061228
  2. FUROSEMIDE [Concomitant]
  3. HYDROCHLOROTHIAZIDE [Concomitant]
  4. INDAPAMIDE [Concomitant]

REACTIONS (1)
  - MYOCARDIAL INFARCTION [None]
